FAERS Safety Report 9449292 (Version 1)
Quarter: 2013Q3

REPORT INFORMATION
  Report Type: Report from Study
  Country: JP (occurrence: JP)
  Receive Date: 20130808
  Receipt Date: 20130808
  Transmission Date: 20140515
  Serious: Yes (Hospitalization)
  Sender: FDA-Public Use
  Company Number: JP-GILEAD-2013-0080917

PATIENT
  Age: 39 Year
  Sex: Male

DRUGS (7)
  1. EMTRICITABINE/TENOFOVIR DISOPROXIL FUMARATE [Suspect]
     Indication: HIV INFECTION
     Dosage: 1 DF, QD
     Route: 048
     Dates: start: 20100331, end: 20120730
  2. ISENTRESS [Concomitant]
     Indication: HIV INFECTION
     Dosage: UNK
     Dates: start: 20120627
  3. SODIUM VALPROATE [Concomitant]
     Dosage: UNK
     Dates: start: 20090401
  4. ALOSITOL [Concomitant]
     Dosage: UNK
     Dates: start: 20090401
  5. ZYRTEC [Concomitant]
     Dosage: UNK
     Dates: start: 20090401
  6. BLOPRESS [Concomitant]
     Dosage: UNK
     Dates: start: 20090401
  7. FLUTIDE [Concomitant]
     Dosage: UNK

REACTIONS (1)
  - Diabetes mellitus [Recovering/Resolving]
